FAERS Safety Report 9098837 (Version 3)
Quarter: 2013Q1

REPORT INFORMATION
  Report Type: Report from Study
  Country: US (occurrence: US)
  Receive Date: 20130213
  Receipt Date: 20130319
  Transmission Date: 20140127
  Serious: Yes (Hospitalization, Other)
  Sender: FDA-Public Use
  Company Number: US-ABBOTT-13P-163-1045773-00

PATIENT
  Age: 44 None
  Sex: Male
  Weight: 59.47 kg

DRUGS (13)
  1. HUMIRA PEN [Suspect]
     Indication: PSORIATIC ARTHROPATHY
     Dates: start: 2005, end: 2011
  2. HUMIRA PEN [Suspect]
     Dates: start: 2011
  3. LORATADINE [Concomitant]
     Indication: SNEEZING
  4. LORATADINE [Concomitant]
     Indication: MULTIPLE ALLERGIES
  5. LEVOTHYROXINE [Concomitant]
     Indication: THYROID DISORDER
  6. GAS RELIEF MEDICATION [Concomitant]
     Indication: BOWEL MOVEMENT IRREGULARITY
  7. HYDRALAZINE [Concomitant]
     Indication: GASTRIC DISORDER
  8. METHOCARBAMOL [Concomitant]
     Indication: MUSCLE RELAXANT THERAPY
  9. MULTIVITAMIN [Concomitant]
     Indication: PRODUCT USED FOR UNKNOWN INDICATION
  10. VITAMIN D NOS [Concomitant]
     Indication: PRODUCT USED FOR UNKNOWN INDICATION
  11. FISH OIL [Concomitant]
     Indication: PRODUCT USED FOR UNKNOWN INDICATION
  12. TYLENOL #3 [Concomitant]
     Indication: PRODUCT USED FOR UNKNOWN INDICATION
  13. PREDNISONE [Concomitant]
     Indication: PRODUCT USED FOR UNKNOWN INDICATION

REACTIONS (15)
  - Tooth loss [Unknown]
  - Fall [Recovered/Resolved with Sequelae]
  - Ankle fracture [Recovered/Resolved with Sequelae]
  - Fall [Recovered/Resolved with Sequelae]
  - Mouth injury [Recovered/Resolved]
  - Jaw fracture [Unknown]
  - Psoriatic arthropathy [Not Recovered/Not Resolved]
  - Gait disturbance [Not Recovered/Not Resolved]
  - Wheelchair user [Not Recovered/Not Resolved]
  - Drooling [Not Recovered/Not Resolved]
  - Mastication disorder [Not Recovered/Not Resolved]
  - Gait disturbance [Not Recovered/Not Resolved]
  - Arthralgia [Not Recovered/Not Resolved]
  - Back pain [Not Recovered/Not Resolved]
  - Impaired healing [Unknown]
